FAERS Safety Report 4775068-3 (Version None)
Quarter: 2005Q3

REPORT INFORMATION
  Report Type: 
  Country: None (occurrence: None)
  Receive Date: 20050920
  Receipt Date: 20050908
  Transmission Date: 20060218
  Serious: Yes (Death, Hospitalization, Other)
  Sender: FDA-Public Use
  Company Number: ENTC2005-0083

PATIENT
  Age: 76 Year
  Sex: Male

DRUGS (8)
  1. STALEVO 100 [Suspect]
     Dosage: 400 MG, ORAL
     Route: 048
     Dates: start: 20041004
  2. SEROQUEL [Concomitant]
  3. CIPRALEX (ESCITALOPRAM) [Concomitant]
  4. MOTILIUM [Concomitant]
  5. NORMOXIN [Concomitant]
  6. EXELON [Concomitant]
  7. MADOPAR [Concomitant]
  8. AVONEX [Concomitant]

REACTIONS (6)
  - BRONCHOPNEUMONIA [None]
  - FALL [None]
  - GENERAL PHYSICAL HEALTH DETERIORATION [None]
  - HEMIPARESIS [None]
  - SOMNOLENCE [None]
  - WOUND [None]
